FAERS Safety Report 5713365-5 (Version None)
Quarter: 2008Q2

REPORT INFORMATION
  Report Type: 
  Country: None (occurrence: None)
  Receive Date: 20080418
  Receipt Date: 20080215
  Transmission Date: 20081010
  Serious: Yes (Life-Threatening, Hospitalization, Other)
  Sender: FDA-Public Use
  Company Number: TRP_05649_2008

PATIENT
  Sex: Male

DRUGS (7)
  1. RIBAVIRIN [Suspect]
     Indication: HEPATITIS C
     Dosage: 1000 MG  ORAL
     Route: 048
     Dates: start: 20070301, end: 20070401
  2. INFERGEN [Suspect]
     Indication: HEPATITIS C
     Dosage: 9  ?G QD  SUBCUTANEOUS
     Route: 058
     Dates: start: 20070301, end: 20070401
  3. PANTOPRAZOLE SODIUM [Concomitant]
  4. PROCRIT [Concomitant]
  5. VALSARTAN [Concomitant]
  6. OXYCODONE HCL [Concomitant]
  7. ATIVAN [Concomitant]

REACTIONS (9)
  - ASTHENIA [None]
  - BILE DUCT OBSTRUCTION [None]
  - BRAIN INJURY [None]
  - CHOLANGITIS SCLEROSING [None]
  - DISORIENTATION [None]
  - GASTROINTESTINAL ULCER HAEMORRHAGE [None]
  - LIVER TRANSPLANT REJECTION [None]
  - WEIGHT DECREASED [None]
  - WHITE BLOOD CELL COUNT DECREASED [None]
